FAERS Safety Report 12816343 (Version 1)
Quarter: 2016Q4

REPORT INFORMATION
  Report Type: Spontaneous
  Country: BR (occurrence: BR)
  Receive Date: 20161006
  Receipt Date: 20161006
  Transmission Date: 20170207
  Serious: No
  Sender: FDA-Public Use
  Company Number: BR-NOVEN PHARMACEUTICALS, INC.-BR2016000718

PATIENT

DRUGS (1)
  1. ESTRADIOL/NORETHISTERONE ACETATE [Suspect]
     Active Substance: ESTRADIOL\NORETHINDRONE ACETATE
     Indication: HEREDITARY HAEMORRHAGIC TELANGIECTASIA
     Dosage: UNK, UNKNOWN
     Route: 065

REACTIONS (2)
  - Drug prescribing error [Unknown]
  - Product use issue [Unknown]
